FAERS Safety Report 6263464-7 (Version None)
Quarter: 2009Q3

REPORT INFORMATION
  Report Type: 
  Country: None (occurrence: None)
  Receive Date: 20090710
  Receipt Date: 20090406
  Transmission Date: 20100115
  Serious: No
  Sender: FDA-Public Use
  Company Number: A0776175A

PATIENT
  Age: 67 Year
  Sex: Male

DRUGS (22)
  1. FLOVENT [Suspect]
     Dosage: 2PUFF TWICE PER DAY
     Route: 055
     Dates: start: 20090316
  2. VENTOLIN [Suspect]
     Dosage: 1PUFF AS REQUIRED
     Route: 055
     Dates: start: 20090313
  3. LANTUS [Concomitant]
  4. ISOSORBIDE [Concomitant]
  5. AZITHROMYCIN [Concomitant]
  6. SALINE NASAL SPRAY [Concomitant]
  7. ASACOL [Concomitant]
  8. PERCOGESIC [Concomitant]
  9. FOLIC ACID [Concomitant]
  10. NEXIUM [Concomitant]
  11. SIMVASTATIN [Concomitant]
  12. MULTI-VITAMIN [Concomitant]
  13. VITAMIN B COMPLEX CAP [Concomitant]
  14. QUINAPRIL [Concomitant]
  15. FUROSEMIDE [Concomitant]
  16. GLYBURIDE [Concomitant]
  17. SPIRONOLACTONE [Concomitant]
  18. COREG [Concomitant]
  19. FISH OIL [Concomitant]
  20. ASPIRIN [Concomitant]
  21. CORTISONE [Concomitant]
     Route: 048
  22. UNSPECIFIED MEDICATION [Concomitant]

REACTIONS (3)
  - DRUG INEFFECTIVE [None]
  - ORAL HERPES [None]
  - OROPHARYNGEAL DISCOMFORT [None]
